FAERS Safety Report 5563536-6 (Version None)
Quarter: 2007Q4

REPORT INFORMATION
  Report Type: 
  Country: None (occurrence: None)
  Receive Date: 20071217
  Receipt Date: 20070614
  Transmission Date: 20080405
  Serious: No
  Sender: FDA-Public Use
  Company Number: US-ASTRAZENECA-2007UW14414

PATIENT
  Age: 76 Year
  Sex: Female
  Weight: 67.6 kg

DRUGS (4)
  1. CRESTOR [Suspect]
     Indication: BLOOD CHOLESTEROL INCREASED
     Route: 048
     Dates: start: 20070604, end: 20070611
  2. DIOVAN [Concomitant]
     Indication: BLOOD PRESSURE
  3. CENTRUM SILVER [Concomitant]
  4. CITRICAL WITH VITAMIN D [Concomitant]

REACTIONS (3)
  - ABDOMINAL PAIN UPPER [None]
  - HYPOAESTHESIA [None]
  - PAIN [None]
